FAERS Safety Report 4433937-8 (Version None)
Quarter: 2004Q3

REPORT INFORMATION
  Report Type: 
  Country: None (occurrence: None)
  Receive Date: 20040826
  Receipt Date: 20040816
  Transmission Date: 20050211
  Serious: Yes (Hospitalization, Other)
  Sender: FDA-Public Use
  Company Number: US-JNJFOC-20040405371

PATIENT
  Sex: Male
  Weight: 76.2 kg

DRUGS (5)
  1. DURAGESIC [Suspect]
     Route: 062
     Dates: start: 20031001
  2. SKELAXIN [Suspect]
     Route: 049
  3. PROPRANOLOL [Concomitant]
     Indication: TREMOR
  4. ZESTRIL [Concomitant]
     Indication: HYPERTENSION
  5. ZOCOR [Concomitant]

REACTIONS (8)
  - ANXIETY [None]
  - BALANCE DISORDER [None]
  - CHILLS [None]
  - DIARRHOEA [None]
  - DIZZINESS [None]
  - FALL [None]
  - NAUSEA [None]
  - VOMITING [None]
